FAERS Safety Report 9097077 (Version 1)
Quarter: 2013Q1

REPORT INFORMATION
  Report Type: Spontaneous
  Country: GB (occurrence: None)
  Receive Date: 20130123
  Receipt Date: 20130123
  Transmission Date: 20140127
  Serious: Yes (Hospitalization)
  Sender: FDA-Public Use
  Company Number: 1558483

PATIENT
  Age: 73 Year
  Sex: Male

DRUGS (6)
  1. PIPERACILLIN + TAZOBACTAM [Suspect]
     Indication: PRODUCT USED FOR UNKNOWN INDICATION
     Dosage: 4.5 G GRAM(S), 3 DAY, INTRAVENOUS (NOT OTHERWISE SPECIFIED)
     Route: 042
     Dates: start: 20110316, end: 20110317
  2. FLUCLOXACILLIN [Suspect]
     Indication: ULCER
     Dosage: 500 MG MILLIGRAMS(S), 4 DAY, ORAL
     Route: 048
     Dates: start: 20110302, end: 20110306
  3. TEICOPLANIN [Suspect]
     Indication: PRODUCT USED FOR UNKNOWN INDICATION
     Route: 042
     Dates: start: 20110305
  4. METRONIDAZOLE [Suspect]
     Indication: PRODUCT USED FOR UNKNOWN INDICATION
     Dosage: 400 MG MILLIGRAM(S), 3 DAY, ORAL
     Route: 048
     Dates: start: 20110305, end: 20110306
  5. CO-AMOXICLAV [Suspect]
     Indication: STREPTOCOCCAL SEPSIS
     Route: 048
     Dates: start: 20110306, end: 20110313
  6. (SULPRIDE) [Concomitant]

REACTIONS (5)
  - Norovirus test positive [None]
  - Clostridium difficile infection [None]
  - Diarrhoea [None]
  - Vomiting [None]
  - Streptococcal sepsis [None]
